FAERS Safety Report 13764252 (Version 1)
Quarter: 2017Q3

REPORT INFORMATION
  Report Type: Spontaneous
  Country: US (occurrence: US)
  Receive Date: 20170718
  Receipt Date: 20170718
  Transmission Date: 20171127
  Serious: Yes (Death, Other)
  Sender: FDA-Public Use
  Company Number: US-PFIZER INC-2017311203

PATIENT
  Age: 66 Year
  Sex: Female

DRUGS (4)
  1. PROTONIX [Suspect]
     Active Substance: PANTOPRAZOLE SODIUM
     Indication: GASTROOESOPHAGEAL REFLUX DISEASE
     Dosage: UNK, ON NUMEROUS OCCASIONS
     Route: 048
     Dates: start: 2005, end: 20150715
  2. PRILOSEC [Suspect]
     Active Substance: OMEPRAZOLE MAGNESIUM
     Indication: GASTROOESOPHAGEAL REFLUX DISEASE
     Dosage: UNK, ON NUMEROUS OCCASIONS
     Route: 048
     Dates: start: 2005, end: 20150715
  3. NEXIUM [Suspect]
     Active Substance: ESOMEPRAZOLE MAGNESIUM
     Indication: GASTROOESOPHAGEAL REFLUX DISEASE
     Dosage: UNK, ON NUMEROUS OCCASIONS
     Route: 048
     Dates: start: 2005, end: 20150715
  4. PREVACID [Suspect]
     Active Substance: LANSOPRAZOLE
     Indication: GASTROOESOPHAGEAL REFLUX DISEASE
     Dosage: UNK, ON NUMEROUS OCCASIONS
     Route: 048
     Dates: start: 2005, end: 20150715

REACTIONS (6)
  - Renal impairment [Unknown]
  - End stage renal disease [Unknown]
  - Cardio-respiratory arrest [Unknown]
  - Chronic kidney disease [Unknown]
  - Multiple organ dysfunction syndrome [Unknown]
  - Death [Fatal]

NARRATIVE: CASE EVENT DATE: 20150715
